FAERS Safety Report 21244849 (Version 1)
Quarter: 2022Q3

REPORT INFORMATION
  Report Type: Report from Study
  Country: AU (occurrence: AU)
  Receive Date: 20220823
  Receipt Date: 20220823
  Transmission Date: 20221026
  Serious: Yes (Other)
  Sender: FDA-Public Use
  Company Number: AU-JAZZ-2022-AU-027354

PATIENT
  Age: 59 Year

DRUGS (1)
  1. VYXEOS [Suspect]
     Active Substance: CYTARABINE\DAUNORUBICIN
     Indication: Product used for unknown indication
     Dosage: UNK

REACTIONS (5)
  - Delayed haematopoietic reconstitution [Unknown]
  - Graft versus host disease in gastrointestinal tract [Unknown]
  - Staphylococcal bacteraemia [Unknown]
  - Febrile neutropenia [Unknown]
  - Mucosal inflammation [Unknown]
